FAERS Safety Report 7600419-1 (Version None)
Quarter: 2011Q3

REPORT INFORMATION
  Report Type: 
  Country: None (occurrence: None)
  Receive Date: 20110711
  Receipt Date: 20110706
  Transmission Date: 20111222
  Serious: Yes (Life-Threatening, Other)
  Sender: FDA-Public Use
  Company Number: PHHY2011US28045

PATIENT
  Sex: Female
  Weight: 74.376 kg

DRUGS (13)
  1. FUROSEMIDE [Concomitant]
  2. SPIRIVA [Concomitant]
  3. MORPHINE [Concomitant]
  4. TEOSAL [Concomitant]
  5. METOPROLOL TARTRATE [Concomitant]
  6. SERTRALINE HYDROCHLORIDE [Concomitant]
  7. RECLAST [Suspect]
     Indication: OSTEOPOROSIS
     Dosage: 5 MG
     Route: 042
     Dates: start: 20101116, end: 20101116
  8. ZANTAC [Concomitant]
  9. VITAMIN D [Concomitant]
  10. CELEBREX [Concomitant]
  11. PRAVASTATIN [Concomitant]
  12. NITROGLYCERIN [Concomitant]
  13. MACRODANTIN [Concomitant]

REACTIONS (7)
  - PAIN IN EXTREMITY [None]
  - ARTHRALGIA [None]
  - FEELING ABNORMAL [None]
  - RENAL PAIN [None]
  - PAIN [None]
  - BEDRIDDEN [None]
  - MALAISE [None]
